FAERS Safety Report 5007619-8 (Version None)
Quarter: 2006Q2

REPORT INFORMATION
  Report Type: 
  Country: None (occurrence: None)
  Receive Date: 20060522
  Receipt Date: 20060512
  Transmission Date: 20061013
  Serious: Yes (Hospitalization)
  Sender: FDA-Public Use
  Company Number: PHEH2006US06270

PATIENT
  Age: 26 Year
  Sex: Male

DRUGS (3)
  1. HYDROXYUREA [Concomitant]
  2. MORPHINE [Concomitant]
  3. EXJADE [Suspect]
     Indication: BLOOD IRON INCREASED
     Dosage: 1500 MG, QD
     Route: 048
     Dates: start: 20060323

REACTIONS (1)
  - SICKLE CELL ANAEMIA WITH CRISIS [None]
